FAERS Safety Report 5677148-7 (Version None)
Quarter: 2008Q1

REPORT INFORMATION
  Report Type: 
  Country: None (occurrence: None)
  Receive Date: 20080324
  Receipt Date: 20080314
  Transmission Date: 20080703
  Serious: Yes (Life-Threatening, Hospitalization, Disabling)
  Sender: FDA-Public Use
  Company Number: A0694198A

PATIENT
  Age: 38 Year
  Sex: Female

DRUGS (8)
  1. LAMICTAL [Suspect]
     Indication: BIPOLAR DISORDER
     Dosage: 50MG PER DAY
     Route: 048
     Dates: start: 20061010, end: 20061030
  2. CLONAZEPAM [Concomitant]
     Dates: end: 20060929
  3. BENZTROPINE MESYLATE [Concomitant]
     Dates: start: 20060911, end: 20061004
  4. ZINC [Concomitant]
  5. UNSPECIFIED MEDICATIONS [Concomitant]
     Dates: end: 20061004
  6. FLOVENT [Concomitant]
  7. ALBUTEROL [Concomitant]
  8. HYDROXYZINE [Concomitant]

REACTIONS (36)
  - ACUTE RESPIRATORY FAILURE [None]
  - ASTHMA [None]
  - BACTERAEMIA [None]
  - BACTERIAL INFECTION [None]
  - BLINDNESS [None]
  - BLISTER [None]
  - COMA [None]
  - CONJUNCTIVITIS [None]
  - DYSPHAGIA [None]
  - EMOTIONAL DISTRESS [None]
  - EYE IRRITATION [None]
  - HEAD INJURY [None]
  - HYPOVOLAEMIA [None]
  - INJURY CORNEAL [None]
  - LUNG INFECTION [None]
  - METABOLIC ACIDOSIS [None]
  - MOUTH ULCERATION [None]
  - OROPHARYNGEAL BLISTERING [None]
  - PAIN [None]
  - PHARYNGEAL INFLAMMATION [None]
  - PHARYNGEAL OEDEMA [None]
  - PNEUMONIA [None]
  - RASH [None]
  - RASH MACULAR [None]
  - RENAL FAILURE ACUTE [None]
  - RESPIRATORY ACIDOSIS [None]
  - SCAR [None]
  - SEPSIS [None]
  - SKIN BURNING SENSATION [None]
  - SKIN EXFOLIATION [None]
  - STEVENS-JOHNSON SYNDROME [None]
  - THERMAL BURN [None]
  - THROAT IRRITATION [None]
  - TOXIC EPIDERMAL NECROLYSIS [None]
  - TRICHIASIS [None]
  - ULCERATIVE KERATITIS [None]
